FAERS Safety Report 7031535-3 (Version None)
Quarter: 2010Q4

REPORT INFORMATION
  Report Type: 
  Country: None (occurrence: None)
  Receive Date: 20101006
  Receipt Date: 20101006
  Transmission Date: 20110411
  Serious: Yes (Disabling)
  Sender: FDA-Public Use
  Company Number: None

PATIENT
  Sex: Male
  Weight: 99.7913 kg

DRUGS (1)
  1. LIDOCAINE 1% HOSPIRA [Suspect]
     Indication: ASPIRATION PLEURAL CAVITY
     Dosage: X1 SQ
     Route: 058
     Dates: start: 20100917, end: 20100917

REACTIONS (5)
  - ANGIOEDEMA [None]
  - BLOOD PRESSURE DECREASED [None]
  - DROOLING [None]
  - LIP SWELLING [None]
  - VASODILATATION [None]
